FAERS Safety Report 6910651-8 (Version None)
Quarter: 2010Q3

REPORT INFORMATION
  Report Type: 
  Country: None (occurrence: None)
  Receive Date: 20100806
  Receipt Date: 20100727
  Transmission Date: 20110219
  Serious: Yes (Disabling)
  Sender: FDA-Public Use
  Company Number: BR-BAYER-201013993LA

PATIENT
  Age: 33 Year
  Sex: Male

DRUGS (11)
  1. BETAFERON [Suspect]
     Indication: MULTIPLE SCLEROSIS
     Dosage: BETAJECT
     Route: 058
     Dates: start: 20100301
  2. BETAFERON [Suspect]
     Dosage: BETAJECT
     Route: 058
  3. BETAFERON [Suspect]
     Dosage: BETAJECT
     Route: 058
     Dates: start: 20100101, end: 20100101
  4. BETAFERON [Suspect]
     Dosage: BETAJECT
     Route: 058
     Dates: start: 20100725
  5. BETAFERON [Suspect]
     Dosage: BETAJECT
     Route: 058
     Dates: start: 20100501, end: 20100101
  6. AZATHIOPRINE [Concomitant]
     Indication: MULTIPLE SCLEROSIS
     Dosage: 1 TAB A DAY
     Route: 048
     Dates: start: 20060101
  7. IBUPROFEN TABLETS [Concomitant]
     Indication: HEADACHE
     Route: 048
     Dates: start: 20100401
  8. PULSE THERAPY [Concomitant]
     Indication: MULTIPLE SCLEROSIS
     Route: 065
     Dates: start: 20100401, end: 20100401
  9. ACETAMINOPHEN [Concomitant]
     Indication: PREMEDICATION
     Route: 048
     Dates: start: 20100101, end: 20100101
  10. IBUPROFEN TABLETS [Concomitant]
     Indication: PREMEDICATION
     Dosage: UNIT DOSE: 300 MG
     Route: 048
     Dates: start: 20100601
  11. BACLOFEN [Concomitant]
     Indication: MUSCLE SPASTICITY
     Dosage: TOTAL DAILY DOSE: 10 MG  UNIT DOSE: 10 MG
     Route: 048
     Dates: start: 20060101

REACTIONS (11)
  - BURNING SENSATION [None]
  - EYE PAIN [None]
  - FACE INJURY [None]
  - FALL [None]
  - GAIT DISTURBANCE [None]
  - HEADACHE [None]
  - MALAISE [None]
  - MUSCLE SPASTICITY [None]
  - MUSCULAR WEAKNESS [None]
  - PYREXIA [None]
  - VISUAL IMPAIRMENT [None]
